FAERS Safety Report 4537056-1 (Version None)
Quarter: 2004Q4

REPORT INFORMATION
  Report Type: 
  Country: None (occurrence: None)
  Receive Date: 20041223
  Receipt Date: 20041105
  Transmission Date: 20050328
  Serious: No
  Sender: FDA-Public Use
  Company Number: US-BRISTOL-MYERS SQUIBB COMPANY-12758421

PATIENT

DRUGS (1)
  1. REYATAZ [Suspect]

REACTIONS (1)
  - NEPHROLITHIASIS [None]
